FAERS Safety Report 25156588 (Version 1)
Quarter: 2025Q2

REPORT INFORMATION
  Report Type: Spontaneous
  Country: CN (occurrence: CN)
  Receive Date: 20250403
  Receipt Date: 20250403
  Transmission Date: 20250716
  Serious: Yes (Life-Threatening, Other)
  Sender: ORGANON
  Company Number: CN-DSJP-DS-2025-133531-CN

PATIENT
  Age: 54 Year
  Sex: Male

DRUGS (3)
  1. HYDROCHLOROTHIAZIDE\OLMESARTAN MEDOXOMIL [Suspect]
     Active Substance: HYDROCHLOROTHIAZIDE\OLMESARTAN MEDOXOMIL
     Indication: Hyperlipidaemia
     Dosage: 3 DOSAGE FORM, BID
     Route: 048
     Dates: start: 20250307, end: 20250307
  2. LOSARTAN POTASSIUM AND HYDROCHLOROTHIAZIDE [Suspect]
     Active Substance: HYDROCHLOROTHIAZIDE\LOSARTAN POTASSIUM
     Indication: Hypertension
     Dosage: 100 MG, QD
     Route: 048
     Dates: start: 20250101, end: 20250327
  3. ASPIRIN [Suspect]
     Active Substance: ASPIRIN
     Indication: Hyperlipidaemia
     Dosage: 100 MG, QD
     Route: 048
     Dates: start: 20250101, end: 20250327

REACTIONS (5)
  - Anaphylactic shock [Recovering/Resolving]
  - Hypoxia [Recovering/Resolving]
  - Hyperlactacidaemia [Recovering/Resolving]
  - Hypokalaemia [Recovering/Resolving]
  - Hyperlipidaemia [Recovering/Resolving]

NARRATIVE: CASE EVENT DATE: 20250307
